FAERS Safety Report 4706824-5 (Version None)
Quarter: 2005Q3

REPORT INFORMATION
  Report Type: 
  Country: None (occurrence: None)
  Receive Date: 20050705
  Receipt Date: 20050624
  Transmission Date: 20060218
  Serious: Yes (Hospitalization, Disabling, Other)
  Sender: FDA-Public Use
  Company Number: 2005092631

PATIENT
  Sex: Female
  Weight: 72.5755 kg

DRUGS (4)
  1. BEXTRA [Suspect]
     Indication: ILL-DEFINED DISORDER
     Dosage: 20 MG (20 MG, 1 IN 1 D) ORAL
     Route: 048
  2. WARFARIN [Concomitant]
  3. ANTIHYPERTENSIVES [Concomitant]
  4. VITAMINS [Concomitant]

REACTIONS (6)
  - CEREBROVASCULAR ACCIDENT [None]
  - FALL [None]
  - HIP FRACTURE [None]
  - MYOCARDIAL INFARCTION [None]
  - PARALYSIS [None]
  - SURGERY [None]
